FAERS Safety Report 11875067 (Version 1)
Quarter: 2015Q4

REPORT INFORMATION
  Report Type: Spontaneous
  Country: US (occurrence: None)
  Receive Date: 20151228
  Receipt Date: 20151228
  Transmission Date: 20160305
  Serious: Yes (Disabling)
  Sender: FDA-Public Use
  Company Number: None

PATIENT
  Age: 68 Year
  Sex: Female
  Weight: 62.6 kg

DRUGS (12)
  1. B12 INJECTIONS [Concomitant]
  2. MAGNESIUM AMINO ACID CHELATE [Concomitant]
  3. ESTROVERA [Concomitant]
  4. MINERALS [Concomitant]
     Active Substance: MINERALS
  5. NITROFURANTOIN MACROCRYSTAL 100MG TEVA USA [Suspect]
     Active Substance: NITROFURANTOIN
     Indication: URINARY TRACT INFECTION
     Dates: start: 20151214, end: 20151222
  6. CALCIUM HYDROXYAPITITE [Concomitant]
  7. PERCOCET [Concomitant]
     Active Substance: ACETAMINOPHEN\OXYCODONE HYDROCHLORIDE
  8. LUMIGAN [Concomitant]
     Active Substance: BIMATOPROST
  9. PREMARIN CRAEM [Concomitant]
  10. BENTYL [Concomitant]
     Active Substance: DICYCLOMINE HYDROCHLORIDE
  11. XANAX [Concomitant]
     Active Substance: ALPRAZOLAM
  12. SAME [Concomitant]

REACTIONS (12)
  - Vomiting [None]
  - Gait disturbance [None]
  - Vein discolouration [None]
  - Rash [None]
  - Painful respiration [None]
  - Dyspnoea [None]
  - Oxygen saturation decreased [None]
  - Fatigue [None]
  - Feeling abnormal [None]
  - Hypersomnia [None]
  - Drug dose omission [None]
  - Muscle spasms [None]

NARRATIVE: CASE EVENT DATE: 20151220
